FAERS Safety Report 10064712 (Version 1)
Quarter: 2014Q2

REPORT INFORMATION
  Report Type: Spontaneous
  Country: FR (occurrence: FR)
  Receive Date: 20140408
  Receipt Date: 20140408
  Transmission Date: 20141212
  Serious: Yes (Hospitalization)
  Sender: FDA-Public Use
  Company Number: FR-JNJFOC-20140401277

PATIENT
  Age: 19 Year
  Sex: Female

DRUGS (3)
  1. PREZISTA [Suspect]
     Indication: HIV TEST POSITIVE
     Route: 048
     Dates: start: 20130827, end: 20130918
  2. NORVIR [Concomitant]
     Route: 065
     Dates: start: 20130412
  3. TRUVADA [Concomitant]
     Dosage: 200MG/245MG
     Route: 065
     Dates: start: 20130412

REACTIONS (4)
  - Paraesthesia [Recovered/Resolved]
  - Asthenia [Unknown]
  - Vertigo [Unknown]
  - Fatigue [Unknown]
